FAERS Safety Report 4410584-5 (Version None)
Quarter: 2004Q3

REPORT INFORMATION
  Report Type: 
  Country: None (occurrence: None)
  Receive Date: 20040726
  Receipt Date: 20040629
  Transmission Date: 20050211
  Serious: Yes (Life-Threatening)
  Sender: FDA-Public Use
  Company Number: US-JNJFOC-20040705660

PATIENT
  Age: 70 Year
  Sex: Female
  Weight: 64.0025 kg

DRUGS (8)
  1. LEVOFLOXACIN [Suspect]
     Indication: DRUG USE FOR UNKNOWN INDICATION
     Dates: start: 20021101, end: 20021115
  2. DIGOXIN [Suspect]
     Indication: DRUG USE FOR UNKNOWN INDICATION
     Dosage: ORAL
     Route: 048
  3. THEOPHYLLINE [Suspect]
     Indication: DRUG USE FOR UNKNOWN INDICATION
     Dosage: ORAL
     Route: 048
  4. ZELDOX (ZIPRASIDONE HYDROCHLORIDE) [Suspect]
     Indication: SCHIZOPHRENIA
     Dosage: 80 MG 2 IN 1 DAY ORAL
     Route: 048
     Dates: start: 20020701, end: 20021115
  5. ZOPICLONE (ZOPICLONE) [Suspect]
     Dosage: ORAL
     Route: 048
  6. VERAPAMIL [Suspect]
     Indication: HYPERTENSION
     Dosage: 160 MG, 2 IN 1 DAY ORAL
     Route: 048
  7. CITALOPRAM HYDROBROMIDE (CITALOPRAM HYDROBROMIDE) [Concomitant]
  8. DONEPEZIL HCL [Concomitant]

REACTIONS (15)
  - ATRIAL FIBRILLATION [None]
  - BLOOD PRESSURE INCREASED [None]
  - BUNDLE BRANCH BLOCK LEFT [None]
  - CIRCULATORY COLLAPSE [None]
  - CONDITION AGGRAVATED [None]
  - DEPRESSION [None]
  - DIABETES MELLITUS [None]
  - DIZZINESS [None]
  - ELECTROCARDIOGRAM QT PROLONGED [None]
  - MYOCARDIAL INFARCTION [None]
  - PARANOIA [None]
  - RESPIRATORY TRACT INFECTION [None]
  - TORSADE DE POINTES [None]
  - VENTRICULAR TACHYCARDIA [None]
  - VOMITING [None]
